FAERS Safety Report 17698869 (Version 1)
Quarter: 2020Q2

REPORT INFORMATION
  Report Type: Spontaneous
  Country: US (occurrence: US)
  Receive Date: 20200423
  Receipt Date: 20200423
  Transmission Date: 20200714
  Serious: No
  Sender: FDA-Public Use
  Company Number: US-TOLMAR, INC.-20US020922

PATIENT
  Sex: Female
  Weight: 88.44 kg

DRUGS (1)
  1. LIDOCAINE AND PRILOCAINE [Suspect]
     Active Substance: LIDOCAINE\PRILOCAINE
     Indication: DIALYSIS
     Dosage: 1 DOSAGE FORM
     Route: 062
     Dates: start: 201912

REACTIONS (2)
  - Product physical consistency issue [Unknown]
  - Drug ineffective [Not Recovered/Not Resolved]
